FAERS Safety Report 8104648-2 (Version None)
Quarter: 2012Q1

REPORT INFORMATION
  Report Type: 
  Country: None (occurrence: None)
  Receive Date: 20120201
  Receipt Date: 20111115
  Transmission Date: 20120608
  Serious: Yes (Disabling, Other)
  Sender: FDA-Public Use
  Company Number: FR-ASTELLAS-2011EU005088

PATIENT
  Sex: Female

DRUGS (4)
  1. PROGRAF [Suspect]
     Dosage: 6.5 MG, UNKNOWN/D
     Route: 065
  2. PROPRANOLOL [Concomitant]
     Dosage: 40 MG, UNKNOWN/D
     Route: 065
  3. PROGRAF [Suspect]
     Dosage: 5.5 MG, UNKNOWN/D
     Route: 065
  4. TACROLIMUS [Suspect]
     Dosage: 5 MG, UNKNOWN/D
     Dates: start: 20110712

REACTIONS (2)
  - DIARRHOEA [None]
  - ADVERSE DRUG REACTION [None]
